FAERS Safety Report 5394036-4 (Version None)
Quarter: 2007Q3

REPORT INFORMATION
  Report Type: 
  Country: None (occurrence: None)
  Receive Date: 20070723
  Receipt Date: 20070131
  Transmission Date: 20080115
  Serious: No
  Sender: FDA-Public Use
  Company Number: A0638013A

PATIENT
  Age: 62 Year
  Sex: Female

DRUGS (3)
  1. AVANDIA [Suspect]
     Route: 048
     Dates: end: 20061229
  2. METFORMIN HCL [Concomitant]
  3. AMARYL [Concomitant]

REACTIONS (4)
  - ANOREXIA [None]
  - NAUSEA [None]
  - WEIGHT DECREASED [None]
  - WEIGHT INCREASED [None]
